FAERS Safety Report 5485723-8 (Version None)
Quarter: 2007Q4

REPORT INFORMATION
  Report Type: 
  Country: None (occurrence: None)
  Receive Date: 20071015
  Receipt Date: 20071002
  Transmission Date: 20080405
  Serious: Yes (Disabling)
  Sender: FDA-Public Use
  Company Number: FR-ROCHE-522995

PATIENT
  Age: 52 Year
  Sex: Male

DRUGS (48)
  1. INVIRASE [Suspect]
     Dosage: REPORTED DOSING AMOUNT: 4 DOSES DAILY.
     Route: 065
     Dates: start: 20060623
  2. INVIRASE [Suspect]
     Route: 065
     Dates: start: 20020318
  3. BACTRIM DS [Suspect]
     Indication: DRUG USE FOR UNKNOWN INDICATION
     Dosage: ALSO RECEIVED ON 28 SEPTEMBER 2005 AND 23 JUNE 2006.
     Route: 065
     Dates: start: 19981027
  4. COMBIVIR [Suspect]
     Dosage: REPORTED DOSING AMOUNT: 2 DOSES DAILY.
     Route: 065
     Dates: start: 20050928, end: 20060623
  5. COMBIVIR [Suspect]
     Route: 065
     Dates: start: 19990511, end: 19990801
  6. COMBIVIR [Suspect]
     Route: 065
     Dates: start: 20010323
  7. TELZIR [Suspect]
     Dosage: REPORTED DOSING AMOUNT: 2 DOSES DAILY. ALSO RECEIVED ON 17 JUNE 2005.
     Route: 065
     Dates: start: 20050329, end: 20060623
  8. NORVIR [Suspect]
     Dosage: ALSO RECEIVED ON 15 OCTOBER 2004, 29 MARCH 2005, 28 SEPTEMBER 2005, 17 JUNE 2005 AND 23 JUNE 2006.
     Route: 065
     Dates: start: 20040417
  9. NORVIR [Suspect]
     Route: 065
     Dates: start: 19990921
  10. NORVIR [Suspect]
     Route: 065
     Dates: start: 20000606
  11. NORVIR [Suspect]
     Route: 065
     Dates: start: 20010323
  12. NORVIR [Suspect]
     Route: 065
     Dates: start: 20020318
  13. NEURONTIN [Suspect]
     Indication: TRIGEMINAL NEURALGIA
     Route: 065
     Dates: start: 20060101
  14. LYRICA [Suspect]
     Indication: TRIGEMINAL NEURALGIA
     Route: 065
     Dates: start: 20060623
  15. RETROVIR [Suspect]
     Indication: DRUG USE FOR UNKNOWN INDICATION
     Route: 065
     Dates: start: 20060623
  16. RETROVIR [Suspect]
     Route: 065
     Dates: start: 20050617
  17. VIREAD [Suspect]
     Indication: DRUG USE FOR UNKNOWN INDICATION
     Route: 065
     Dates: start: 20060623
  18. VIREAD [Suspect]
     Route: 065
     Dates: start: 20030103
  19. VIREAD [Suspect]
     Route: 065
     Dates: start: 20030912
  20. VIREAD [Suspect]
     Route: 065
     Dates: start: 20040417
  21. VIREAD [Suspect]
     Route: 065
     Dates: start: 20041015
  22. VIREAD [Suspect]
     Route: 065
     Dates: start: 20050329
  23. VIREAD [Suspect]
     Route: 065
     Dates: start: 20050617
  24. SUSTIVA [Concomitant]
     Dates: start: 19990223
  25. VIDEX [Concomitant]
     Dates: start: 20000901
  26. VIDEX [Concomitant]
     Dates: start: 19981027, end: 19981211
  27. VIDEX [Concomitant]
     Dates: start: 19990921
  28. ZERIT [Concomitant]
     Dates: start: 19990921
  29. ZERIT [Concomitant]
     Dates: start: 19981027
  30. ZERIT [Concomitant]
     Dates: start: 19981211
  31. ZERIT [Concomitant]
     Dates: start: 19990223
  32. HIVID [Concomitant]
     Dates: start: 19981211, end: 19990801
  33. HIVID [Concomitant]
     Dates: start: 19990511
  34. CRIXIVAN [Concomitant]
     Dates: start: 19990921
  35. CRIXIVAN [Concomitant]
     Dates: start: 20000606
  36. 1 CONCOMITANT DRUG [Concomitant]
     Dosage: DRUG NAME: ABT378.
     Dates: start: 20000901
  37. EPIVIR [Concomitant]
     Dates: start: 20000901
  38. AGENERASE [Concomitant]
     Dates: start: 20010323
  39. KALETRA [Concomitant]
     Dates: start: 20030103
  40. KALETRA [Concomitant]
     Dates: start: 20030912
  41. FUZEON [Concomitant]
     Dates: start: 20030912
  42. FUZEON [Concomitant]
     Dates: start: 20040417
  43. 1 CONCOMITANT DRUG [Concomitant]
     Dates: start: 20041015
  44. 1 CONCOMITANT DRUG [Concomitant]
     Dosage: DRUG NAME REPORTED: REYATEZ.
     Dates: start: 20040417
  45. ZIAGEN [Concomitant]
     Dates: start: 20041015
  46. TERCIAN [Concomitant]
     Dates: start: 20041015
  47. LAROXYL [Concomitant]
     Dates: start: 20041015
  48. TENOFOVIR [Concomitant]
     Dates: start: 20020318

REACTIONS (1)
  - OPTIC NEURITIS RETROBULBAR [None]
